FAERS Safety Report 6588816-7 (Version None)
Quarter: 2010Q1

REPORT INFORMATION
  Report Type: 
  Country: None (occurrence: None)
  Receive Date: 20100212
  Receipt Date: 20100127
  Transmission Date: 20100710
  Serious: Yes (Other)
  Sender: FDA-Public Use
  Company Number: AUR-APL-2010-00380

PATIENT
  Age: 76 Year
  Sex: Male
  Weight: 80 kg

DRUGS (8)
  1. SIMVASTATIN [Suspect]
     Indication: ACUTE CORONARY SYNDROME
  2. LIPITOR [Suspect]
     Dosage: 80 MG, DAILY, ORAL
     Route: 048
     Dates: start: 20091006
  3. CHANTIX [Suspect]
  4. ALFUZOSIN HCL [Concomitant]
  5. ALLOPURINOL [Concomitant]
  6. ASPIRIN [Concomitant]
  7. BISOPROLOL [Concomitant]
  8. RAMIPRIL [Concomitant]

REACTIONS (7)
  - FINGER DEFORMITY [None]
  - MUSCLE SPASMS [None]
  - MYALGIA [None]
  - SCIATICA [None]
  - SLEEP DISORDER [None]
  - TENDON RUPTURE [None]
  - WEIGHT INCREASED [None]
